FAERS Safety Report 14526072 (Version 1)
Quarter: 2018Q1

REPORT INFORMATION
  Report Type: Spontaneous
  Country: US (occurrence: US)
  Receive Date: 20180213
  Receipt Date: 20180213
  Transmission Date: 20180509
  Serious: Yes (Other)
  Sender: FDA-Public Use
  Company Number: US-EPIC PHARMA LLC-2018EPC00057

PATIENT
  Sex: Male

DRUGS (2)
  1. METHADONE HYDROCHLORIDE. [Suspect]
     Active Substance: METHADONE HYDROCHLORIDE
     Indication: DRUG WITHDRAWAL MAINTENANCE THERAPY
     Dosage: 80 MG, 3X/DAY
     Route: 065
  2. METHADONE HYDROCHLORIDE. [Suspect]
     Active Substance: METHADONE HYDROCHLORIDE
     Dosage: 240 MG, ONCE
     Route: 065

REACTIONS (3)
  - Intentional overdose [Unknown]
  - Delirium [Unknown]
  - Electrocardiogram QT prolonged [Unknown]
